FAERS Safety Report 25009346 (Version 1)
Quarter: 2025Q1

REPORT INFORMATION
  Report Type: Spontaneous
  Country: US (occurrence: US)
  Receive Date: 20250225
  Receipt Date: 20250225
  Transmission Date: 20250408
  Serious: No
  Sender: PFIZER
  Company Number: US-PFIZER INC-202500041708

PATIENT
  Age: 80 Year
  Sex: Male
  Weight: 76.2 kg

DRUGS (1)
  1. VYNDAMAX [Suspect]
     Active Substance: TAFAMIDIS

REACTIONS (3)
  - Fall [Unknown]
  - Skin injury [Unknown]
  - Limb injury [Unknown]
